FAERS Safety Report 10210356 (Version 1)
Quarter: 2014Q2

REPORT INFORMATION
  Report Type: Spontaneous
  Country: GB (occurrence: GB)
  Receive Date: 20140602
  Receipt Date: 20140602
  Transmission Date: 20141212
  Serious: Yes (Disabling)
  Sender: FDA-Public Use
  Company Number: GB-TEVA-483500ISR

PATIENT
  Age: 64 Year
  Sex: Male
  Weight: 63 kg

DRUGS (17)
  1. CITALOPRAM [Suspect]
     Indication: DEPRESSION
     Route: 048
     Dates: end: 20131227
  2. CITALOPRAM [Suspect]
     Dosage: 30 MILLIGRAM DAILY; 30 MG DAILY
     Route: 048
     Dates: start: 20131228, end: 201404
  3. CITALOPRAM [Suspect]
     Dosage: 20 MG AND DOSE DECREASED OVER 3 WEEKS UNTIL WITHDRAWN
     Route: 048
     Dates: start: 201404
  4. ASPIRIN [Concomitant]
     Dosage: 75 MG DAILY
  5. CARBOCISTEINE [Concomitant]
     Dosage: 750 MG THREE TIMES DAILY
     Route: 048
  6. CLOPIDOGREL [Concomitant]
     Dosage: 75 MG DAILY
  7. DIAZEPAM [Concomitant]
     Dosage: 1 MG TWICE DAILY
     Route: 048
     Dates: start: 201312
  8. IBUPROFEN [Concomitant]
     Dosage: THREE TIMES DAILY, AS REQUIRED
     Route: 050
  9. IPRATROPIUM [Concomitant]
     Dosage: 500 MCG FOUR TIMES DAILY
     Route: 050
  10. LANSOPRAZOLE [Concomitant]
     Dosage: 30 MG DAILY
  11. MELATONIN [Concomitant]
     Dosage: 2 MG DAILY
  12. PARACETAMOL [Concomitant]
     Dosage: 1 G FOUR TIMES DAILY
  13. PREDNISOLONE [Concomitant]
     Dosage: 5 MG DAILY
  14. RAMIPRIL [Concomitant]
     Dosage: 2.5 MG DAILY
     Route: 048
     Dates: start: 201307
  15. SALBUTAMOL [Concomitant]
     Dosage: 2.5 MG FOUR TIMES DAILY
     Route: 050
  16. THEOPHYLLINE [Concomitant]
     Dosage: 200 MG TWICE DAILY
     Route: 048
  17. ZOPICLONE [Concomitant]
     Dosage: 7.5 MG DAILY (TAKEN AT NIGHT)
     Route: 048
     Dates: start: 201312

REACTIONS (4)
  - Muscle rigidity [Not Recovered/Not Resolved]
  - Extrapyramidal disorder [Not Recovered/Not Resolved]
  - Restlessness [Not Recovered/Not Resolved]
  - Anxiety [Not Recovered/Not Resolved]
